FAERS Safety Report 17562674 (Version 1)
Quarter: 2020Q1

REPORT INFORMATION
  Report Type: Spontaneous
  Country: US (occurrence: US)
  Receive Date: 20200319
  Receipt Date: 20200319
  Transmission Date: 20200409
  Serious: No
  Sender: FDA-Public Use
  Company Number: US-EISAI MEDICAL RESEARCH-EC-2020-071701

PATIENT
  Sex: Female

DRUGS (1)
  1. BELVIQ XR [Suspect]
     Active Substance: LORCASERIN HYDROCHLORIDE
     Indication: PRODUCT USED FOR UNKNOWN INDICATION
     Route: 048
     Dates: end: 201905

REACTIONS (5)
  - Autoscopy [Unknown]
  - Headache [Unknown]
  - Withdrawal syndrome [Unknown]
  - Disturbance in attention [Unknown]
  - Anxiety [Unknown]

NARRATIVE: CASE EVENT DATE: 2019
